FAERS Safety Report 4855416-6 (Version None)
Quarter: 2005Q4

REPORT INFORMATION
  Report Type: 
  Country: None (occurrence: None)
  Receive Date: 20051125
  Receipt Date: 20050404
  Transmission Date: 20060501
  Serious: Yes (Other)
  Sender: FDA-Public Use
  Company Number: US-JNJFOC-20050302580

PATIENT
  Age: 72 Year
  Sex: Female
  Weight: 43.0917 kg

DRUGS (3)
  1. LEVAQUIN [Suspect]
     Indication: BRONCHITIS
     Dates: start: 20050122, end: 20050131
  2. PULMICORT [Concomitant]
  3. PROVENTIL [Concomitant]

REACTIONS (1)
  - TENDON RUPTURE [None]
